FAERS Safety Report 19244442 (Version 1)
Quarter: 2021Q2

REPORT INFORMATION
  Report Type: Other
  Country: US (occurrence: US)
  Receive Date: 20210512
  Receipt Date: 20210512
  Transmission Date: 20210717
  Serious: No
  Sender: FDA-Public Use
  Company Number: US-NEUROCRINE BIOSCIENCES INC.-2021NBI02112

PATIENT

DRUGS (4)
  1. GABAPENTIN. [Concomitant]
     Active Substance: GABAPENTIN
     Dosage: UNK
  2. INGREZZA [Suspect]
     Active Substance: VALBENAZINE
     Indication: TARDIVE DYSKINESIA
     Dosage: 80 MILLIGRAM, QD
     Route: 048
     Dates: start: 20210407
  3. XANAX [Concomitant]
     Active Substance: ALPRAZOLAM
     Dosage: 1 MILLIGRAM, QD
     Route: 048
  4. LATUDA [Concomitant]
     Active Substance: LURASIDONE HYDROCHLORIDE
     Dosage: 120 MILLIGRAM, QD
     Route: 048

REACTIONS (1)
  - Panic attack [Not Recovered/Not Resolved]

NARRATIVE: CASE EVENT DATE: 20210411
